FAERS Safety Report 24059520 (Version 1)
Quarter: 2024Q3

REPORT INFORMATION
  Report Type: Spontaneous
  Country: US (occurrence: US)
  Receive Date: 20240708
  Receipt Date: 20240708
  Transmission Date: 20241017
  Serious: No
  Sender: IPSEN
  Company Number: US-IPSEN Group, Research and Development-2024-13424

PATIENT
  Age: 89 Year
  Sex: Female
  Weight: 82.55 kg

DRUGS (1)
  1. TAZVERIK [Suspect]
     Active Substance: TAZEMETOSTAT HYDROBROMIDE
     Indication: Follicular lymphoma
     Dosage: 800 MG TWICE DAILY
     Route: 048
     Dates: start: 20210611

REACTIONS (1)
  - Memory impairment [Recovering/Resolving]
